FAERS Safety Report 15320489 (Version 1)
Quarter: 2018Q3

REPORT INFORMATION
  Report Type: Spontaneous
  Country: US (occurrence: US)
  Receive Date: 20180821
  Receipt Date: 20180821
  Transmission Date: 20181010
  Serious: Yes (Life-Threatening, Hospitalization, Other)
  Sender: FDA-Public Use
  Company Number: None

PATIENT
  Age: 42 Year
  Sex: Female
  Weight: 76 kg

DRUGS (1)
  1. FERAHEME [Suspect]
     Active Substance: FERUMOXYTOL NON-STOICHIOMETRIC MAGNETITE
     Indication: ANAEMIA

REACTIONS (7)
  - Moaning [None]
  - Speech disorder [None]
  - Feeling abnormal [None]
  - Hyperhidrosis [None]
  - Infusion related reaction [None]
  - Chest pain [None]
  - Feeling hot [None]

NARRATIVE: CASE EVENT DATE: 20180413
